FAERS Safety Report 8081434-3 (Version None)
Quarter: 2012Q1

REPORT INFORMATION
  Report Type: 
  Country: None (occurrence: None)
  Receive Date: 20120130
  Receipt Date: 20120126
  Transmission Date: 20120608
  Serious: Yes (Hospitalization)
  Sender: FDA-Public Use
  Company Number: BR-ABBOTT-11P-020-0879499-00

PATIENT
  Sex: Female
  Weight: 52 kg

DRUGS (10)
  1. ACETAMINOPHEN [Concomitant]
     Indication: HEADACHE
     Dosage: 1 OR 3 TABLETS DEPENDING ON PAIN
  2. SCOPOLAMINE [Concomitant]
     Indication: PAIN
     Route: 048
  3. UNKNOWN DRUG [Concomitant]
     Indication: GLAUCOMA
     Dosage: ON EACH EYE
  4. MESALAMINE [Concomitant]
     Indication: CROHN'S DISEASE
     Route: 048
  5. HUMIRA [Suspect]
  6. LUFTAL [Concomitant]
     Indication: DYSPEPSIA
     Route: 048
  7. ANADOR [Concomitant]
     Indication: PAIN
     Dosage: 1 TAB Q6-8H PRN
     Route: 048
  8. ATROVERAN [Concomitant]
     Indication: PAIN
     Route: 048
  9. HUMIRA [Suspect]
     Indication: CROHN'S DISEASE
     Route: 058
     Dates: start: 20110901
  10. SCOPOLAMINE [Concomitant]
     Indication: ABDOMINAL PAIN

REACTIONS (8)
  - RENAL COLIC [None]
  - RENAL DISORDER [None]
  - URINARY TRACT INFECTION [None]
  - KIDNEY INFECTION [None]
  - NERVOUSNESS [None]
  - WEIGHT INCREASED [None]
  - NEPHROLITHIASIS [None]
  - NERVOUS SYSTEM DISORDER [None]
